FAERS Safety Report 22634091 (Version 1)
Quarter: 2023Q2

REPORT INFORMATION
  Report Type: Spontaneous
  Country: IE (occurrence: IE)
  Receive Date: 20230623
  Receipt Date: 20230623
  Transmission Date: 20230722
  Serious: Yes (Other)
  Sender: FDA-Public Use
  Company Number: IE-BIOGEN-2023BI01211310

PATIENT

DRUGS (1)
  1. TYSABRI [Suspect]
     Active Substance: NATALIZUMAB
     Indication: Product used for unknown indication
     Route: 050

REACTIONS (1)
  - Progressive multifocal leukoencephalopathy [Unknown]
